FAERS Safety Report 14232184 (Version 1)
Quarter: 2017Q4

REPORT INFORMATION
  Report Type: Spontaneous
  Country: US (occurrence: US)
  Receive Date: 20171128
  Receipt Date: 20171128
  Transmission Date: 20180321
  Serious: No
  Sender: FDA-Public Use
  Company Number: US-BAYER-2017-228256

PATIENT
  Age: 79 Year
  Sex: Female
  Weight: 49.98 kg

DRUGS (1)
  1. MIRALAX [Suspect]
     Active Substance: POLYETHYLENE GLYCOL 3350
     Indication: GASTROINTESTINAL DISORDER
     Dosage: UNK UNK, BID 1 TABLESPOON IN WATER TWICE A DAY
     Route: 048

REACTIONS (2)
  - Flatulence [Unknown]
  - Wrong technique in product usage process [Unknown]
